FAERS Safety Report 21610767 (Version 5)
Quarter: 2023Q1

REPORT INFORMATION
  Report Type: Spontaneous
  Country: DE (occurrence: None)
  Receive Date: 20221117
  Receipt Date: 20230324
  Transmission Date: 20230417
  Serious: Yes (Life-Threatening, Hospitalization, Disabling, Other)
  Sender: FDA-Public Use
  Company Number: DE-ROCHE-3220371

PATIENT
  Age: 78 Year
  Sex: Female
  Weight: 80 kg

DRUGS (14)
  1. TOCILIZUMAB [Suspect]
     Active Substance: TOCILIZUMAB
     Indication: Giant cell arteritis
     Route: 058
     Dates: start: 20181203, end: 202101
  2. TOCILIZUMAB [Suspect]
     Active Substance: TOCILIZUMAB
     Indication: Hypertension
     Route: 058
     Dates: start: 202101, end: 20221110
  3. TOCILIZUMAB [Suspect]
     Active Substance: TOCILIZUMAB
     Indication: Hyperlipidaemia
  4. XARELTO [Concomitant]
     Active Substance: RIVAROXABAN
     Dates: start: 20190103
  5. NEBIVOLOL [Concomitant]
     Active Substance: NEBIVOLOL
     Indication: Hypertension
     Dates: start: 201806
  6. CANDESARTAN [Concomitant]
     Active Substance: CANDESARTAN
     Indication: Hypertension
     Dates: start: 201905
  7. PANTOPRAZOLE SODIUM [Concomitant]
     Active Substance: PANTOPRAZOLE SODIUM
  8. CITALOPRAM [Concomitant]
     Active Substance: CITALOPRAM HYDROBROMIDE
  9. PREDNISOLONE [Concomitant]
     Active Substance: PREDNISOLONE
  10. SIMVASTATIN [Concomitant]
     Active Substance: SIMVASTATIN
  11. CHOLECALCIFEROL [Concomitant]
     Active Substance: CHOLECALCIFEROL
  12. AMLODIPINE [Concomitant]
     Active Substance: AMLODIPINE BESYLATE
  13. RIVAROXABAN [Concomitant]
     Active Substance: RIVAROXABAN
     Dosage: FOR 3 WEEKS,
     Dates: start: 20190123
  14. RIVAROXABAN [Concomitant]
     Active Substance: RIVAROXABAN
     Dates: end: 201907

REACTIONS (8)
  - Pseudobulbar palsy [Not Recovered/Not Resolved]
  - Respiratory tract infection [Unknown]
  - Motor neurone disease [Not Recovered/Not Resolved]
  - Venous thrombosis limb [Recovered/Resolved]
  - Pulmonary embolism [Recovered/Resolved]
  - Bronchitis [Recovered/Resolved]
  - Hypertension [Recovered/Resolved]
  - Blood glucose increased [Unknown]

NARRATIVE: CASE EVENT DATE: 20181218
